FAERS Safety Report 5473290-4 (Version None)
Quarter: 2007Q4

REPORT INFORMATION
  Report Type: 
  Country: None (occurrence: None)
  Receive Date: 20071001
  Receipt Date: 20070926
  Transmission Date: 20080405
  Serious: Yes (Death)
  Sender: FDA-Public Use
  Company Number: CA-BAYER-200715669GDS

PATIENT
  Age: 54 Year
  Sex: Male

DRUGS (1)
  1. APROTININ [Suspect]
     Indication: HEART TRANSPLANT
     Route: 065

REACTIONS (10)
  - ANAPHYLACTIC SHOCK [None]
  - BRONCHOSPASM [None]
  - COAGULOPATHY [None]
  - HYPOTENSION [None]
  - OXYGEN SATURATION DECREASED [None]
  - PERIPHERAL ISCHAEMIA [None]
  - PULMONARY OEDEMA [None]
  - RASH ERYTHEMATOUS [None]
  - RENAL FAILURE [None]
  - RIGHT VENTRICULAR FAILURE [None]
